FAERS Safety Report 10164650 (Version 1)
Quarter: 2014Q2

REPORT INFORMATION
  Report Type: Spontaneous
  Country: US (occurrence: US)
  Receive Date: 20140510
  Receipt Date: 20140510
  Transmission Date: 20141212
  Serious: No
  Sender: FDA-Public Use
  Company Number: US-BRISTOL-MYERS SQUIBB COMPANY-20147617

PATIENT
  Age: 72 Year
  Sex: Female
  Weight: 87.07 kg

DRUGS (1)
  1. BYDUREON [Suspect]
     Indication: GLUCOSE TOLERANCE IMPAIRED
     Dates: start: 20131212, end: 20131219

REACTIONS (1)
  - Injection site mass [Not Recovered/Not Resolved]
